FAERS Safety Report 25926142 (Version 1)
Quarter: 2025Q4

REPORT INFORMATION
  Report Type: Report from Study
  Country: JP (occurrence: JP)
  Receive Date: 20251015
  Receipt Date: 20251015
  Transmission Date: 20260117
  Serious: Yes (Life-Threatening, Hospitalization, Other)
  Sender: ALEXION PHARMACEUTICALS
  Company Number: JP-ALXN-A202214178

PATIENT
  Sex: Male
  Weight: 70 kg

DRUGS (22)
  1. SOLIRIS [Suspect]
     Active Substance: ECULIZUMAB
     Indication: Myasthenia gravis
     Dosage: 900 MILLIGRAM, QW
     Dates: start: 20220610, end: 20220701
  2. SOLIRIS [Suspect]
     Active Substance: ECULIZUMAB
     Dosage: 1200 MILLIGRAM, Q2W
     Dates: start: 20220708, end: 20220914
  3. SOLIRIS [Suspect]
     Active Substance: ECULIZUMAB
     Dosage: 1200 MILLIGRAM, Q2W
     Route: 065
     Dates: start: 20230728
  4. ULTOMIRIS [Suspect]
     Active Substance: RAVULIZUMAB-CWVZ
     Indication: Myasthenia gravis
     Dosage: 2700 MILLIGRAM, Q2W
     Dates: start: 20220930, end: 20221014
  5. ULTOMIRIS [Suspect]
     Active Substance: RAVULIZUMAB-CWVZ
     Dosage: 3300 MILLIGRAM, Q56
     Dates: start: 20221214, end: 20230602
  6. PREDONINE [Suspect]
     Active Substance: PREDNISOLONE
     Indication: Myasthenia gravis
     Dosage: 30 MILLIGRAM, QD
     Dates: end: 202206
  7. PREDONINE [Suspect]
     Active Substance: PREDNISOLONE
     Dosage: 17.5 MILLIGRAM, QD
     Dates: start: 202206, end: 202306
  8. PREDONINE [Suspect]
     Active Substance: PREDNISOLONE
     Dosage: 17.5 MILLIGRAM
     Dates: start: 20220930, end: 20221114
  9. PREDONINE [Suspect]
     Active Substance: PREDNISOLONE
     Dosage: 20 MILLIGRAM
     Dates: start: 20221115, end: 20221208
  10. PREDONINE [Suspect]
     Active Substance: PREDNISOLONE
     Dosage: 17 MILLIGRAM
     Dates: start: 20221209, end: 20230106
  11. PREDONINE [Suspect]
     Active Substance: PREDNISOLONE
     Dosage: 16 MILLIGRAM
     Dates: start: 20220107, end: 20230203
  12. PREDONINE [Suspect]
     Active Substance: PREDNISOLONE
     Dosage: 15 MILLIGRAM
     Dates: start: 20230204, end: 20230303
  13. PREDONINE [Suspect]
     Active Substance: PREDNISOLONE
     Dosage: 14 MILLIGRAM
     Dates: start: 20230304, end: 20230330
  14. PREDONINE [Suspect]
     Active Substance: PREDNISOLONE
     Dosage: 13 MILLIGRAM
     Dates: start: 20230331, end: 20230512
  15. PREDONINE [Suspect]
     Active Substance: PREDNISOLONE
     Dosage: 12 MILLIGRAM
     Dates: start: 20230512, end: 20230602
  16. NEORAL [Concomitant]
     Active Substance: CYCLOSPORINE
     Dosage: 200 MILLIGRAM
     Dates: start: 20220930, end: 20230330
  17. MYTELASE [Concomitant]
     Active Substance: AMBENONIUM CHLORIDE
     Dosage: 20 MILLIGRAM
     Dates: start: 20220930, end: 20230330
  18. DEXAMETHASONE SODIUM PHOSPHATE [Concomitant]
     Active Substance: DEXAMETHASONE SODIUM PHOSPHATE
     Dosage: 6.6 MILLIGRAM
     Route: 065
     Dates: start: 20221114, end: 20221120
  19. ROCEPHIN [Concomitant]
     Active Substance: CEFTRIAXONE SODIUM
     Dosage: 4 GRAMS
     Route: 065
     Dates: start: 20221114, end: 20221120
  20. LANSOPRAZOLE [Concomitant]
     Active Substance: LANSOPRAZOLE
     Dosage: 30 MILLIGRAM
     Route: 065
     Dates: start: 20221114, end: 20221120
  21. SOLU-MEDROL [Concomitant]
     Active Substance: METHYLPREDNISOLONE SODIUM SUCCINATE
     Dosage: 1000 MILLIGRAM
     Route: 065
     Dates: start: 20230626, end: 20230630
  22. CYCLOSPORINE [Concomitant]
     Active Substance: CYCLOSPORINE
     Dosage: 150 MILLIGRAM

REACTIONS (3)
  - COVID-19 pneumonia [Recovered/Resolved]
  - Myasthenia gravis [Recovered/Resolved]
  - Large intestine perforation [Recovered/Resolved]

NARRATIVE: CASE EVENT DATE: 20221109
